FAERS Safety Report 7585266-1 (Version None)
Quarter: 2011Q3

REPORT INFORMATION
  Report Type: 
  Country: None (occurrence: None)
  Receive Date: 20110701
  Receipt Date: 20110623
  Transmission Date: 20111222
  Serious: Yes (Other)
  Sender: FDA-Public Use
  Company Number: KR-AMGEN-KORSP2011032909

PATIENT
  Sex: Female

DRUGS (4)
  1. METHOTREXATE [Concomitant]
     Dosage: 7.5 MG, WEEKLY
     Route: 048
  2. CELEBREX [Concomitant]
     Dosage: UNK, FOR 4 OR 5 YEARS
     Route: 048
     Dates: start: 20060101
  3. ENBREL [Suspect]
     Indication: RHEUMATOID ARTHRITIS
     Dosage: 25 MG, WEEKLY
     Dates: start: 20090101
  4. FOLATE [Concomitant]
     Dosage: UNK
     Route: 048

REACTIONS (4)
  - DIZZINESS [None]
  - NASOPHARYNGITIS [None]
  - HYPOACUSIS [None]
  - FEELING ABNORMAL [None]
